FAERS Safety Report 17585138 (Version 2)
Quarter: 2020Q2

REPORT INFORMATION
  Report Type: Spontaneous
  Country: DK (occurrence: DK)
  Receive Date: 20200326
  Receipt Date: 20200513
  Transmission Date: 20200713
  Serious: Yes (Other)
  Sender: FDA-Public Use
  Company Number: DK-ROCHE-2573705

PATIENT
  Sex: Female

DRUGS (1)
  1. BONVIVA [Suspect]
     Active Substance: IBANDRONATE SODIUM
     Indication: OSTEOPOROSIS
     Dosage: 1 MG/ML
     Route: 042
     Dates: start: 20180509, end: 20180723

REACTIONS (5)
  - Exposed bone in jaw [Unknown]
  - Loose tooth [Recovered/Resolved]
  - Osteonecrosis of jaw [Unknown]
  - Dental prosthesis placement [Not Recovered/Not Resolved]
  - Tooth extraction [Recovered/Resolved]
